FAERS Safety Report 5431264-3 (Version None)
Quarter: 2007Q3

REPORT INFORMATION
  Report Type: 
  Country: None (occurrence: None)
  Receive Date: 20070830
  Receipt Date: 20070818
  Transmission Date: 20080115
  Serious: Yes (Hospitalization, Other)
  Sender: FDA-Public Use
  Company Number: US-ROCHE-494833

PATIENT
  Age: 55 Year
  Sex: Female

DRUGS (4)
  1. PEGASYS [Suspect]
     Indication: HEPATITIS C
     Route: 065
     Dates: start: 20061103, end: 20070801
  2. COPEGUS [Suspect]
     Indication: HEPATITIS C
     Route: 065
     Dates: start: 20061103, end: 20070801
  3. CLONAZEPAM [Concomitant]
     Route: 065
  4. WELLBUTRIN [Concomitant]

REACTIONS (12)
  - ASTHENIA [None]
  - CANDIDIASIS [None]
  - CHEST PAIN [None]
  - DEHYDRATION [None]
  - DYSGEUSIA [None]
  - EAR PAIN [None]
  - HEPATIC ENZYME INCREASED [None]
  - HYPOAESTHESIA [None]
  - NEOPLASM MALIGNANT [None]
  - PARAESTHESIA [None]
  - VISION BLURRED [None]
  - WHITE BLOOD CELL COUNT DECREASED [None]
